FAERS Safety Report 18402128 (Version 4)
Quarter: 2021Q2

REPORT INFORMATION
  Report Type: Spontaneous
  Country: US (occurrence: US)
  Receive Date: 20201019
  Receipt Date: 20210419
  Transmission Date: 20210717
  Serious: No
  Sender: FDA-Public Use
  Company Number: US-PFIZER INC-2020402888

PATIENT
  Age: 53 Year
  Sex: Male

DRUGS (4)
  1. XELJANZ XR [Suspect]
     Active Substance: TOFACITINIB CITRATE
     Dosage: 11 MG, DAILY EXCEPT FOR TUESDAYS
     Dates: start: 2020
  2. RASUVO [Concomitant]
     Active Substance: METHOTREXATE SODIUM
     Dosage: UNK
  3. XELJANZ XR [Suspect]
     Active Substance: TOFACITINIB CITRATE
     Dosage: 11 MG
     Dates: start: 20210113
  4. XELJANZ XR [Suspect]
     Active Substance: TOFACITINIB CITRATE
     Indication: RHEUMATOID ARTHRITIS
     Dosage: 11 MG, DAILY
     Route: 048
     Dates: start: 2020

REACTIONS (7)
  - Off label use [Unknown]
  - Migraine [Recovered/Resolved]
  - Disease recurrence [Recovered/Resolved]
  - Product dose omission issue [Unknown]
  - Therapeutic product effect incomplete [Unknown]
  - Pain in extremity [Unknown]
  - Back pain [Unknown]

NARRATIVE: CASE EVENT DATE: 2020
